FAERS Safety Report 8063195-7 (Version None)
Quarter: 2012Q1

REPORT INFORMATION
  Report Type: 
  Country: None (occurrence: None)
  Receive Date: 20120123
  Receipt Date: 20120111
  Transmission Date: 20120608
  Serious: Yes (Other)
  Sender: FDA-Public Use
  Company Number: PHHY2012FR002959

PATIENT
  Sex: Female

DRUGS (2)
  1. RASILEZ [Suspect]
     Dosage: 150 MG, BID
     Dates: end: 20120108
  2. RASILEZ [Suspect]
     Dosage: 300 MG, QD
     Dates: start: 20111101, end: 20120101

REACTIONS (11)
  - TETANY [None]
  - SUFFOCATION FEELING [None]
  - MUSCLE CONTRACTURE [None]
  - FATIGUE [None]
  - BLOOD PRESSURE INCREASED [None]
  - ABDOMINAL PAIN UPPER [None]
  - TRISMUS [None]
  - BACK PAIN [None]
  - ANGIOEDEMA [None]
  - TONGUE DISCOLOURATION [None]
  - FUNGAL INFECTION [None]
